FAERS Safety Report 26191433 (Version 1)
Quarter: 2025Q4

REPORT INFORMATION
  Report Type: Spontaneous
  Country: EU (occurrence: EU)
  Receive Date: 20251223
  Receipt Date: 20251223
  Transmission Date: 20260118
  Serious: Yes (Hospitalization, Other)
  Sender: SANOFI AVENTIS
  Company Number: None

PATIENT
  Sex: Female

DRUGS (1)
  1. DUPIXENT [Suspect]
     Active Substance: DUPILUMAB
     Indication: Asthma
     Dosage: 1 DF, QCY (CYCLICAL)
     Route: 058
     Dates: start: 202106, end: 20250706

REACTIONS (3)
  - Castleman^s disease [Recovering/Resolving]
  - C-reactive protein increased [Recovering/Resolving]
  - Hypergammaglobulinaemia [Recovering/Resolving]

NARRATIVE: CASE EVENT DATE: 20210101
